FAERS Safety Report 10065538 (Version 1)
Quarter: 2014Q2

REPORT INFORMATION
  Report Type: Spontaneous
  Country: JP (occurrence: JP)
  Receive Date: 20140408
  Receipt Date: 20140408
  Transmission Date: 20141212
  Serious: Yes (Hospitalization, Other)
  Sender: FDA-Public Use
  Company Number: JP-ACTAVIS-2014-06527

PATIENT
  Age: 45 Year
  Sex: Female
  Weight: 53 kg

DRUGS (2)
  1. HYDROCORTISONE (UNKNOWN) [Suspect]
     Indication: HORMONE REPLACEMENT THERAPY
     Dosage: 15 MG, DAILY
     Route: 065
  2. HYDROCORTISONE (UNKNOWN) [Suspect]
     Dosage: 30 MG, DAILY
     Route: 065

REACTIONS (2)
  - Secondary hyperthyroidism [Recovered/Resolved]
  - Steroid withdrawal syndrome [Recovered/Resolved]
